FAERS Safety Report 10222868 (Version 1)
Quarter: 2014Q2

REPORT INFORMATION
  Report Type: Spontaneous
  Country: US (occurrence: US)
  Receive Date: 20140607
  Receipt Date: 20140607
  Transmission Date: 20141212
  Serious: Yes (Other)
  Sender: FDA-Public Use
  Company Number: US-AMGEN INC.-USASP2014041738

PATIENT
  Sex: Female

DRUGS (2)
  1. ENBREL [Suspect]
     Indication: PRODUCT USED FOR UNKNOWN INDICATION
     Dosage: 50 MG, QWK
     Route: 064
     Dates: end: 20130415
  2. PRENATAL                           /00231801/ [Concomitant]
     Dosage: UNK UNK, QD
     Route: 064
     Dates: start: 201304, end: 201402

REACTIONS (1)
  - Jaundice neonatal [Unknown]
